FAERS Safety Report 7294714-6 (Version None)
Quarter: 2011Q1

REPORT INFORMATION
  Report Type: 
  Country: None (occurrence: None)
  Receive Date: 20110216
  Receipt Date: 20110203
  Transmission Date: 20110831
  Serious: Yes (Hospitalization)
  Sender: FDA-Public Use
  Company Number: US-JNJFOC-20100502134

PATIENT
  Sex: Male
  Weight: 87.5 kg

DRUGS (16)
  1. PROPRANOLOL [Concomitant]
     Route: 048
  2. ACIPHEX [Concomitant]
     Route: 048
  3. METHOTREXATE [Concomitant]
     Indication: CROHN'S DISEASE
     Route: 030
  4. USTEKINUMAB [Suspect]
     Indication: CROHN'S DISEASE
     Route: 042
  5. VICODIN [Concomitant]
     Route: 048
  6. VITAMIN B-12 [Concomitant]
     Route: 058
  7. CIPRO [Concomitant]
     Route: 048
  8. METRONIDAZOLE [Concomitant]
     Route: 048
  9. PREDNISONE [Concomitant]
     Indication: CROHN'S DISEASE
  10. METHADOSE [Concomitant]
     Route: 048
  11. ISONIAZID [Concomitant]
     Route: 048
  12. PLACEBO [Suspect]
     Indication: CROHN'S DISEASE
     Route: 058
  13. USTEKINUMAB [Suspect]
     Route: 042
  14. SULFASALAZINE [Concomitant]
     Indication: CROHN'S DISEASE
     Route: 048
  15. QUESTRAN [Concomitant]
     Route: 048
  16. PLACEBO [Suspect]
     Route: 058

REACTIONS (2)
  - ABDOMINAL ABSCESS [None]
  - ENTEROCUTANEOUS FISTULA [None]
